FAERS Safety Report 4971345-1 (Version None)
Quarter: 2006Q2

REPORT INFORMATION
  Report Type: 
  Country: None (occurrence: None)
  Receive Date: 20060406
  Receipt Date: 20060323
  Transmission Date: 20061013
  Serious: Yes (Other)
  Sender: FDA-Public Use
  Company Number: JP200603003143

PATIENT
  Age: 33 Year
  Sex: Male

DRUGS (4)
  1. ZYPREXA [Suspect]
     Indication: SCHIZOPHRENIA
     Dosage: 5 MG, DAILY (1/D), ORAL
     Route: 048
     Dates: start: 20060207
  2. PENTASA ^KYORIN^ (MESALAZINE) [Concomitant]
  3. FAMOTIDINE [Concomitant]
  4. PREDNISOLONE [Concomitant]

REACTIONS (1)
  - RESTLESS LEGS SYNDROME [None]
